FAERS Safety Report 4950370-0 (Version None)
Quarter: 2006Q1

REPORT INFORMATION
  Report Type: 
  Country: None (occurrence: None)
  Receive Date: 20060316
  Receipt Date: 20060303
  Transmission Date: 20060701
  Serious: Yes (Death, Hospitalization)
  Sender: FDA-Public Use
  Company Number: 2006032519

PATIENT
  Age: 64 Year
  Sex: Male

DRUGS (3)
  1. FELDENE [Suspect]
     Indication: PAIN
     Dosage: 120 MG (40 MG, 3 IN 1 D), INTRAVENOUS
     Route: 042
  2. NEURONTIN [Suspect]
     Indication: DIABETIC NEUROPATHY
     Dosage: 2400 MG (1 IN 1 D)
  3. BI-EUGLUCON (GLIBNECLAMIDE, PHENFORMIN HYDROCHLORIDE) [Concomitant]

REACTIONS (2)
  - DIABETES MELLITUS INADEQUATE CONTROL [None]
  - GASTROINTESTINAL HAEMORRHAGE [None]
